FAERS Safety Report 10980288 (Version 2)
Quarter: 2015Q2

REPORT INFORMATION
  Report Type: Spontaneous
  Country: US (occurrence: US)
  Receive Date: 20150402
  Receipt Date: 20150525
  Transmission Date: 20150821
  Serious: No
  Sender: FDA-Public Use
  Company Number: US-JNJFOC-20130800338

PATIENT
  Age: 82 Year
  Sex: Female
  Weight: 49.9 kg

DRUGS (2)
  1. IMODIUM MULTI-SYMPTOM RELIEF [Suspect]
     Active Substance: DIMETHICONE\LOPERAMIDE HYDROCHLORIDE
     Indication: DIARRHOEA
     Dosage: 1 1/2 TABLET
     Route: 048
     Dates: start: 20130724
  2. IMODIUM MULTI-SYMPTOM RELIEF [Suspect]
     Active Substance: DIMETHICONE\LOPERAMIDE HYDROCHLORIDE
     Route: 048

REACTIONS (4)
  - Product difficult to swallow [Recovered/Resolved]
  - Choking [Unknown]
  - Wrong technique in drug usage process [Unknown]
  - Product coating issue [Unknown]

NARRATIVE: CASE EVENT DATE: 20130731
